FAERS Safety Report 8010083-8 (Version None)
Quarter: 2011Q4

REPORT INFORMATION
  Report Type: 
  Country: None (occurrence: None)
  Receive Date: 20111228
  Receipt Date: 20111220
  Transmission Date: 20120403
  Serious: Yes (Hospitalization)
  Sender: FDA-Public Use
  Company Number: JP-BRISTOL-MYERS SQUIBB COMPANY-16313975

PATIENT
  Age: 74 Year
  Sex: Male
  Weight: 72 kg

DRUGS (3)
  1. TS-1 [Suspect]
     Indication: GASTRIC CANCER
     Dosage: CAPSULE
     Route: 048
     Dates: start: 20111206, end: 20111219
  2. CETUXIMAB [Suspect]
     Indication: GASTRIC CANCER
     Dosage: 5MG/ML IS THE STRENGTH 728MG:06DEC11-ONG, 452.5MG:13DEC11-13DEC11. RECENT INFU:13DEC11
     Route: 042
     Dates: start: 20111206, end: 20111213
  3. CISPLATIN [Suspect]
     Indication: GASTRIC CANCER
     Dosage: ON DAY 8 OF EACH CYCLE RECENT INFU:13DEC11
     Route: 042
     Dates: start: 20111213, end: 20111213

REACTIONS (1)
  - TROUSSEAU'S SYNDROME [None]
